FAERS Safety Report 8025305-7 (Version None)
Quarter: 2012Q1

REPORT INFORMATION
  Report Type: 
  Country: None (occurrence: None)
  Receive Date: 20120105
  Receipt Date: 20111230
  Transmission Date: 20120608
  Serious: Yes (Hospitalization, Other)
  Sender: FDA-Public Use
  Company Number: FR-ABBOTT-11P-056-0718314-00

PATIENT
  Age: 41 Year
  Sex: Male

DRUGS (3)
  1. HUMIRA [Suspect]
     Indication: CROHN'S DISEASE
     Route: 058
     Dates: start: 20100201, end: 20100901
  2. CORTICOTHERAPY [Suspect]
     Indication: PRODUCT USED FOR UNKNOWN INDICATION
     Dates: start: 20110101
  3. HUMIRA [Suspect]
     Indication: ENTEROCOLITIS HAEMORRHAGIC
     Route: 058
     Dates: start: 20100901, end: 20110214

REACTIONS (4)
  - PULMONARY GRANULOMA [None]
  - EOSINOPHILIA [None]
  - RENAL DISORDER [None]
  - CROHN'S DISEASE [None]
